FAERS Safety Report 14152218 (Version 1)
Quarter: 2017Q4

REPORT INFORMATION
  Report Type: Spontaneous
  Country: CR (occurrence: CR)
  Receive Date: 20171102
  Receipt Date: 20171102
  Transmission Date: 20180321
  Serious: Yes (Other)
  Sender: FDA-Public Use
  Company Number: CR-JNJFOC-20171027749

PATIENT
  Sex: Male

DRUGS (1)
  1. DARATUMUMAB [Suspect]
     Active Substance: DARATUMUMAB
     Indication: PRODUCT USED FOR UNKNOWN INDICATION
     Route: 042
     Dates: start: 20170503

REACTIONS (5)
  - Disease progression [Unknown]
  - Plasma cell leukaemia [Unknown]
  - General physical health deterioration [Unknown]
  - Fatigue [Unknown]
  - Haemoglobin decreased [Unknown]
